FAERS Safety Report 7826552-7 (Version None)
Quarter: 2011Q4

REPORT INFORMATION
  Report Type: 
  Country: None (occurrence: None)
  Receive Date: 20111020
  Receipt Date: 20111010
  Transmission Date: 20120403
  Serious: Yes (Life-Threatening)
  Sender: FDA-Public Use
  Company Number: IT-JNJFOC-20110902543

PATIENT
  Age: 52 Year
  Sex: Female

DRUGS (6)
  1. NIMESULIDE [Concomitant]
     Route: 048
  2. METHYLPREDNISOLONE [Concomitant]
     Indication: PREMEDICATION
     Route: 065
  3. PLAQUENIL [Concomitant]
     Route: 048
  4. RANIDIL [Concomitant]
     Indication: PREMEDICATION
     Route: 065
  5. MEDROL [Concomitant]
     Route: 048
  6. REMICADE [Suspect]
     Indication: RHEUMATOID ARTHRITIS
     Route: 042
     Dates: start: 20110531, end: 20110901

REACTIONS (5)
  - HYPERSENSITIVITY [None]
  - TONGUE OEDEMA [None]
  - PRESYNCOPE [None]
  - ABDOMINAL PAIN UPPER [None]
  - INFUSION RELATED REACTION [None]
